FAERS Safety Report 8491224-5 (Version None)
Quarter: 2012Q3

REPORT INFORMATION
  Report Type: 
  Country: None (occurrence: None)
  Receive Date: 20120706
  Receipt Date: 20120626
  Transmission Date: 20120928
  Serious: Yes (Other)
  Sender: FDA-Public Use
  Company Number: CA-JNJFOC-20120613960

PATIENT
  Sex: Male

DRUGS (3)
  1. REMICADE [Suspect]
     Indication: COLITIS ULCERATIVE
     Route: 042
     Dates: start: 20110630
  2. BENADRYL [Concomitant]
     Indication: PREMEDICATION
     Route: 065
  3. REMICADE [Suspect]
     Route: 042
     Dates: start: 20120626, end: 20120626

REACTIONS (10)
  - BODY TEMPERATURE INCREASED [None]
  - INFUSION RELATED REACTION [None]
  - HYPERTENSION [None]
  - TACHYCARDIA [None]
  - APHAGIA [None]
  - WEIGHT DECREASED [None]
  - DIARRHOEA HAEMORRHAGIC [None]
  - ABDOMINAL PAIN [None]
  - CHILLS [None]
  - COLITIS ULCERATIVE [None]
